FAERS Safety Report 9563524 (Version 1)
Quarter: 2013Q3

REPORT INFORMATION
  Report Type: Spontaneous
  Country: US (occurrence: None)
  Receive Date: 20130926
  Receipt Date: 20130926
  Transmission Date: 20140515
  Serious: Yes (Hospitalization)
  Sender: FDA-Public Use
  Company Number: None

PATIENT
  Age: 60 Year
  Sex: Female
  Weight: 71.2 kg

DRUGS (9)
  1. BENDAMUSTINE HYDROCHLORIDE [Suspect]
  2. BORTEZOMIB [Suspect]
  3. RITUXIMAB [Suspect]
  4. ALLOPURIONAL [Concomitant]
  5. BISACODYL [Concomitant]
  6. MAGNESIUM CITRATE [Concomitant]
  7. PROCHLOPERAZINE MALEATE [Concomitant]
  8. VALTREX [Concomitant]
  9. ZOFRAN [Concomitant]

REACTIONS (13)
  - Nausea [None]
  - Constipation [None]
  - Abdominal distension [None]
  - Abdominal pain [None]
  - Abscess [None]
  - Localised intraabdominal fluid collection [None]
  - Colonic abscess [None]
  - Diverticulitis [None]
  - Tachycardia [None]
  - Hypoxia [None]
  - Anaemia postoperative [None]
  - Diverticular perforation [None]
  - Fistula [None]
